FAERS Safety Report 18213664 (Version 1)
Quarter: 2020Q3

REPORT INFORMATION
  Report Type: Spontaneous
  Country: BR (occurrence: BR)
  Receive Date: 20200831
  Receipt Date: 20200831
  Transmission Date: 20201103
  Serious: Yes (Other)
  Sender: FDA-Public Use
  Company Number: NVSC2020BR239014

PATIENT
  Age: 82 Year
  Sex: Female

DRUGS (1)
  1. RISPERIDONE. [Suspect]
     Active Substance: RISPERIDONE
     Indication: PRODUCT USED FOR UNKNOWN INDICATION
     Dosage: 1 MG
     Route: 065

REACTIONS (4)
  - Sleep talking [Recovering/Resolving]
  - Schizophrenia [Recovering/Resolving]
  - Wrong technique in product usage process [Recovering/Resolving]
  - Joint swelling [Recovering/Resolving]
